FAERS Safety Report 10385314 (Version 2)
Quarter: 2014Q4

REPORT INFORMATION
  Report Type: Spontaneous
  Country: US (occurrence: US)
  Receive Date: 20140814
  Receipt Date: 20141010
  Transmission Date: 20150528
  Serious: Yes (Death)
  Sender: FDA-Public Use
  Company Number: US-BRISTOL-MYERS SQUIBB COMPANY-21304548

PATIENT
  Age: 77 Year
  Sex: Male
  Weight: 87.07 kg

DRUGS (13)
  1. JANUVIA [Suspect]
     Active Substance: SITAGLIPTIN PHOSPHATE
     Dosage: 17DEC2010-25MAY2011:?22OCT2012-26NOV2012
     Dates: start: 20101217, end: 20121126
  2. VITAMIN D3 [Concomitant]
     Active Substance: CHOLECALCIFEROL
  3. ASPIRIN. [Concomitant]
     Active Substance: ASPIRIN
  4. BYETTA [Suspect]
     Active Substance: EXENATIDE
     Dates: start: 20080604, end: 20091114
  5. KLOR-CON [Concomitant]
     Active Substance: POTASSIUM CHLORIDE
  6. NITROSTAT [Concomitant]
     Active Substance: NITROGLYCERIN
  7. MULTIPLE VITAMINS [Concomitant]
     Active Substance: VITAMINS
  8. VICTOZA [Suspect]
     Active Substance: LIRAGLUTIDE
     Dates: start: 20130115, end: 20130206
  9. DOXAZOSIN MESYLATE. [Concomitant]
     Active Substance: DOXAZOSIN MESYLATE
  10. FUROSEMIDE. [Concomitant]
     Active Substance: FUROSEMIDE
  11. NOVOLOG [Concomitant]
     Active Substance: INSULIN ASPART
  12. METOPROLOL [Concomitant]
     Active Substance: METOPROLOL
  13. OMEPRAZOLE. [Concomitant]
     Active Substance: OMEPRAZOLE

REACTIONS (1)
  - Pancreatic carcinoma [Fatal]

NARRATIVE: CASE EVENT DATE: 20131120
